FAERS Safety Report 25370065 (Version 1)
Quarter: 2025Q2

REPORT INFORMATION
  Report Type: Spontaneous
  Country: AU (occurrence: AU)
  Receive Date: 20250528
  Receipt Date: 20250528
  Transmission Date: 20250716
  Serious: Yes (Other)
  Sender: TEVA
  Company Number: AU-TEVA-VS-3333857

PATIENT
  Age: 30 Year
  Sex: Female

DRUGS (2)
  1. MODAFINIL [Interacting]
     Active Substance: MODAFINIL
     Indication: Product used for unknown indication
     Route: 065
  2. MIRENA [Interacting]
     Active Substance: LEVONORGESTREL
     Indication: Product used for unknown indication
     Route: 065

REACTIONS (4)
  - Polycystic ovarian syndrome [Unknown]
  - Condition aggravated [Unknown]
  - Intermenstrual bleeding [Unknown]
  - Dysmenorrhoea [Unknown]
